FAERS Safety Report 21132811 (Version 2)
Quarter: 2022Q3

REPORT INFORMATION
  Report Type: Report from Study
  Country: DE (occurrence: DE)
  Receive Date: 20220726
  Receipt Date: 20220815
  Transmission Date: 20221027
  Serious: Yes (Hospitalization, Other)
  Sender: FDA-Public Use
  Company Number: DE-MYLANLABS-2022M1080390

PATIENT
  Sex: Female

DRUGS (17)
  1. METHOTREXATE [Suspect]
     Active Substance: METHOTREXATE
     Indication: Rheumatoid arthritis
     Dosage: 7.5 MILLIGRAM
     Route: 065
     Dates: start: 20180423
  2. METHOTREXATE [Suspect]
     Active Substance: METHOTREXATE
     Dosage: 7.5 MILLIGRAM
     Route: 065
     Dates: start: 20180924
  3. METHOTREXATE [Suspect]
     Active Substance: METHOTREXATE
     Dosage: 7.5 MILLIGRAM
     Route: 065
     Dates: start: 20190411
  4. METHOTREXATE [Suspect]
     Active Substance: METHOTREXATE
     Dosage: 7.5 MILLIGRAM
     Route: 065
     Dates: start: 20191008
  5. METHOTREXATE [Suspect]
     Active Substance: METHOTREXATE
     Dosage: 7.5 MILLIGRAM
     Route: 065
     Dates: start: 20200128
  6. METHOTREXATE [Suspect]
     Active Substance: METHOTREXATE
     Dosage: 7.5 MILLIGRAM
     Route: 065
     Dates: start: 20210614
  7. METHOTREXATE [Suspect]
     Active Substance: METHOTREXATE
     Dosage: 10 MILLIGRAM
     Route: 065
     Dates: start: 20211015
  8. LEFLUNOMIDE [Suspect]
     Active Substance: LEFLUNOMIDE
     Indication: Rheumatoid arthritis
     Dosage: 10 MILLIGRAM
     Route: 065
     Dates: start: 20191008
  9. LEFLUNOMIDE [Suspect]
     Active Substance: LEFLUNOMIDE
     Dosage: 10 MILLIGRAM
     Route: 065
     Dates: start: 20200128
  10. LEFLUNOMIDE [Suspect]
     Active Substance: LEFLUNOMIDE
     Dosage: 10 MILLIGRAM
     Route: 065
     Dates: start: 20210614
  11. LEFLUNOMIDE [Suspect]
     Active Substance: LEFLUNOMIDE
     Dosage: 10 MILLIGRAM
     Route: 065
     Dates: start: 20211015
  12. SIMPONI [Suspect]
     Active Substance: GOLIMUMAB
     Indication: Rheumatoid arthritis
     Dosage: 50 MILLIGRAM
     Route: 065
     Dates: start: 201609, end: 201707
  13. ORENCIA [Suspect]
     Active Substance: ABATACEPT
     Indication: Rheumatoid arthritis
     Dosage: 125 MILLIGRAM
     Route: 065
     Dates: start: 201807, end: 201812
  14. METHOTREXATE [Suspect]
     Active Substance: METHOTREXATE
     Indication: Rheumatoid arthritis
     Dosage: 27.5 MILLIGRAM
     Route: 065
     Dates: start: 20160905
  15. METHOTREXATE [Suspect]
     Active Substance: METHOTREXATE
     Dosage: 27.5 MILLIGRAM
     Route: 065
     Dates: start: 20161206
  16. METHOTREXATE [Suspect]
     Active Substance: METHOTREXATE
     Dosage: 27.5 MILLIGRAM
     Route: 065
     Dates: start: 20170306
  17. METHOTREXATE [Suspect]
     Active Substance: METHOTREXATE
     Dosage: 27.5 MILLIGRAM
     Route: 065
     Dates: start: 20171016

REACTIONS (17)
  - Gastritis [Recovered/Resolved]
  - Gastrooesophageal reflux disease [Recovered/Resolved]
  - Duodenitis [Recovered/Resolved]
  - Folate deficiency [Recovered/Resolved]
  - Pneumothorax spontaneous [Recovered/Resolved]
  - Hypokalaemia [Unknown]
  - Chronic obstructive pulmonary disease [Recovered/Resolved]
  - Bronchitis haemophilus [Unknown]
  - Anaemia macrocytic [Recovered/Resolved]
  - Gastroenteritis [Recovered/Resolved]
  - Pneumonia [Recovered/Resolved]
  - Gastric ulcer haemorrhage [Recovered/Resolved]
  - Rheumatoid arthritis [Recovered/Resolved]
  - Thrombocytopenia [Unknown]
  - Oral candidiasis [Recovered/Resolved]
  - Escherichia urinary tract infection [Recovered/Resolved]
  - Onychomycosis [Not Recovered/Not Resolved]

NARRATIVE: CASE EVENT DATE: 20200203
